FAERS Safety Report 8139429-7 (Version None)
Quarter: 2012Q1

REPORT INFORMATION
  Report Type: 
  Country: None (occurrence: None)
  Receive Date: 20120215
  Receipt Date: 20120207
  Transmission Date: 20120608
  Serious: Yes (Other)
  Sender: FDA-Public Use
  Company Number: US-ROCHE-794114

PATIENT
  Sex: Male
  Weight: 63.56 kg

DRUGS (2)
  1. ACCUTANE [Suspect]
     Indication: ACNE CYSTIC
     Route: 065
     Dates: start: 19820101, end: 19830101
  2. ACCUTANE [Suspect]
     Route: 065
     Dates: start: 19850101, end: 19860101

REACTIONS (4)
  - INFLAMMATORY BOWEL DISEASE [None]
  - HEPATIC ENZYME INCREASED [None]
  - IRRITABLE BOWEL SYNDROME [None]
  - EMOTIONAL DISORDER [None]
